FAERS Safety Report 8564579-0 (Version None)
Quarter: 2012Q3

REPORT INFORMATION
  Report Type: 
  Country: None (occurrence: None)
  Receive Date: 20120803
  Receipt Date: 20120731
  Transmission Date: 20120928
  Serious: Yes (Other)
  Sender: FDA-Public Use
  Company Number: US-PFIZER INC-2012186865

PATIENT
  Sex: Female
  Weight: 53.515 kg

DRUGS (7)
  1. VALIUM [Suspect]
     Dosage: UNK
  2. XANAX [Suspect]
     Indication: PANIC DISORDER
  3. ALPRAZOLAM [Suspect]
     Indication: PANIC DISORDER
  4. ALPRAZOLAM [Suspect]
     Indication: INSOMNIA
  5. XANAX [Suspect]
     Indication: ANXIETY
     Dosage: 1MG FOUR TIMES A DAY AND 2MG AT NIGHT
     Route: 048
  6. XANAX [Suspect]
     Indication: INSOMNIA
  7. ALPRAZOLAM [Suspect]
     Indication: ANXIETY
     Dosage: UNK

REACTIONS (5)
  - SURGERY [None]
  - DEPRESSION [None]
  - TABLET PHYSICAL ISSUE [None]
  - DRUG INEFFECTIVE [None]
  - PANIC ATTACK [None]
